FAERS Safety Report 11515330 (Version 2)
Quarter: 2015Q3

REPORT INFORMATION
  Report Type: Spontaneous
  Country: US (occurrence: US)
  Receive Date: 20150916
  Receipt Date: 20150917
  Transmission Date: 20151125
  Serious: Yes (Other)
  Sender: FDA-Public Use
  Company Number: US-TEVA-593720USA

PATIENT
  Age: 43 Year
  Sex: Female

DRUGS (1)
  1. NUVIGIL [Suspect]
     Active Substance: ARMODAFINIL
     Indication: PRODUCT USED FOR UNKNOWN INDICATION
     Dates: start: 20150902

REACTIONS (4)
  - Dysgeusia [Unknown]
  - Dry mouth [Unknown]
  - Mouth swelling [Unknown]
  - Swollen tongue [Unknown]
